FAERS Safety Report 6616112-8 (Version None)
Quarter: 2010Q1

REPORT INFORMATION
  Report Type: 
  Country: None (occurrence: None)
  Receive Date: 20100305
  Receipt Date: 20100223
  Transmission Date: 20100710
  Serious: Yes (Death)
  Sender: FDA-Public Use
  Company Number: JP-MERCK-0912USA03386

PATIENT
  Age: 84 Year
  Sex: Female
  Weight: 34 kg

DRUGS (9)
  1. STROMECTOL [Suspect]
     Indication: ACARODERMATITIS
     Route: 048
     Dates: start: 20091022, end: 20091022
  2. STROMECTOL [Suspect]
     Route: 048
     Dates: start: 20091029, end: 20091029
  3. LASIX [Concomitant]
     Route: 048
     Dates: start: 20090601, end: 20091102
  4. ASPARA K [Concomitant]
     Route: 048
     Dates: start: 20090601, end: 20091102
  5. C CYSTEN [Concomitant]
     Route: 048
     Dates: start: 20090703, end: 20091102
  6. PONOPHEN [Concomitant]
     Route: 048
     Dates: start: 20090703, end: 20091102
  7. MINOPEN [Concomitant]
     Indication: PYREXIA
     Route: 065
     Dates: start: 20091016, end: 20091102
  8. MINOPEN [Concomitant]
     Route: 042
     Dates: start: 20091016, end: 20091102
  9. EURAX [Concomitant]
     Route: 061
     Dates: start: 20091022, end: 20091102

REACTIONS (1)
  - CARDIO-RESPIRATORY ARREST [None]
